FAERS Safety Report 16891095 (Version 1)
Quarter: 2019Q4

REPORT INFORMATION
  Report Type: Spontaneous
  Country: ES (occurrence: ES)
  Receive Date: 20191007
  Receipt Date: 20191007
  Transmission Date: 20200122
  Serious: Yes (Life-Threatening, Hospitalization, Other)
  Sender: FDA-Public Use
  Company Number: ES-PFIZER INC-2019424956

PATIENT
  Age: 78 Year
  Sex: Male

DRUGS (1)
  1. DOCETAXEL. [Suspect]
     Active Substance: DOCETAXEL
     Indication: PROSTATE CANCER
     Dosage: 60 MG/M2;  FRECUENCIA NO CONOCIDA AL COMIENZO POR TENER RAM TRAS LA 1? DOSIS
     Route: 042
     Dates: start: 20190312, end: 20190312

REACTIONS (3)
  - Agranulocytosis [Recovered/Resolved]
  - Diarrhoea [Recovered/Resolved]
  - Pyrexia [Recovered/Resolved]

NARRATIVE: CASE EVENT DATE: 20190317
